FAERS Safety Report 9659285 (Version 2)
Quarter: 2013Q4

REPORT INFORMATION
  Report Type: Spontaneous
  Country: US (occurrence: US)
  Receive Date: 20131031
  Receipt Date: 20131031
  Transmission Date: 20140711
  Serious: No
  Sender: FDA-Public Use
  Company Number: US-HORIZON-DUE-0047-2013

PATIENT
  Age: 53 Year
  Sex: Female

DRUGS (1)
  1. DUEXIS [Suspect]
     Indication: JOINT SWELLING

REACTIONS (1)
  - Eyelid oedema [Recovered/Resolved]
